FAERS Safety Report 9469694 (Version 2)
Quarter: 2013Q3

REPORT INFORMATION
  Report Type: Report from Study
  Country: US (occurrence: US)
  Receive Date: 20130822
  Receipt Date: 20130822
  Transmission Date: 20140515
  Serious: Yes (Other)
  Sender: FDA-Public Use
  Company Number: PHEH2013US012293

PATIENT
  Age: 66 Year
  Sex: Female

DRUGS (19)
  1. GLEEVEC [Suspect]
     Indication: SOFT TISSUE CANCER
     Dosage: 400 MG, DAILY
     Route: 048
     Dates: start: 20130513
  2. GLEEVEC [Interacting]
     Indication: GASTROINTESTINAL STROMAL TUMOUR
     Dosage: 400 MG, QD
     Route: 048
  3. TEGRETOL-XR [Interacting]
     Dosage: UNK UKN, UNK
  4. KLONOPIN [Concomitant]
     Dosage: UNK UKN, UNK
  5. CENTRUM [Concomitant]
     Dosage: UNK UKN, UNK
  6. RESTASIS [Concomitant]
     Dosage: UNK UKN, UNK
  7. SYNTHROID [Concomitant]
     Dosage: UNK UKN, UNK
  8. PROMETHAZINE [Concomitant]
     Dosage: UNK UKN, UNK
  9. METOPROLOL SUCCINATE [Concomitant]
     Dosage: UNK UKN, UNK
  10. METROGEL [Concomitant]
     Dosage: UNK UKN, UNK
  11. CALCIUM + VIT D [Concomitant]
     Dosage: UNK UKN, UNK
  12. CHOLECALCIFEROL [Concomitant]
  13. DAILY VITAMINS [Concomitant]
  14. IRON [Concomitant]
  15. KEPPRA [Concomitant]
     Indication: CONVULSION
  16. LEVOTHROID [Concomitant]
  17. LIDODERM [Concomitant]
  18. METOPROLOL TARTRATE [Concomitant]
  19. ONDASETRON [Concomitant]

REACTIONS (12)
  - Gastrointestinal stromal tumour [Unknown]
  - Malignant neoplasm progression [Unknown]
  - Rash [Unknown]
  - Nausea [Recovered/Resolved]
  - Eye swelling [Unknown]
  - Urticaria [Unknown]
  - Joint swelling [Unknown]
  - Drug interaction [Unknown]
  - Anaemia [Unknown]
  - Pleural effusion [Unknown]
  - Arthralgia [Unknown]
  - Fatigue [Unknown]
